FAERS Safety Report 13625782 (Version 1)
Quarter: 2017Q2

REPORT INFORMATION
  Report Type: Spontaneous
  Country: GB (occurrence: GB)
  Receive Date: 20170607
  Receipt Date: 20170607
  Transmission Date: 20170830
  Serious: Yes (Hospitalization, Other)
  Sender: FDA-Public Use
  Company Number: GB-PFIZER INC-2017244871

PATIENT
  Age: 22 Year
  Sex: Male

DRUGS (1)
  1. XANAX [Suspect]
     Active Substance: ALPRAZOLAM
     Indication: DEPRESSED MOOD
     Dosage: 1 TABLET, UNK

REACTIONS (3)
  - Syncope [Recovering/Resolving]
  - Swelling [Recovering/Resolving]
  - Respiratory arrest [Recovering/Resolving]
